FAERS Safety Report 7326354-4 (Version None)
Quarter: 2011Q1

REPORT INFORMATION
  Report Type: 
  Country: None (occurrence: None)
  Receive Date: 20110302
  Receipt Date: 20110207
  Transmission Date: 20110831
  Serious: Yes (Other)
  Sender: FDA-Public Use
  Company Number: US-SANOFI-AVENTIS-2010SA068873

PATIENT
  Age: 91 Year
  Sex: Female
  Weight: 47.62 kg

DRUGS (8)
  1. ASPIRIN [Concomitant]
  2. GLYBURIDE [Concomitant]
     Route: 048
  3. POTASSIUM CHLORIDE [Concomitant]
  4. NIFEDIPINE [Concomitant]
     Route: 048
  5. SIMVASTATIN [Concomitant]
     Route: 048
  6. PLAVIX [Suspect]
     Route: 048
     Dates: start: 20100601
  7. PLAVIX [Suspect]
     Route: 048
     Dates: start: 20100601
  8. CHOLESTEROL- AND TRIGLYCERIDE REDUCERS [Concomitant]

REACTIONS (11)
  - MALAISE [None]
  - DIARRHOEA [None]
  - DECREASED APPETITE [None]
  - WEIGHT DECREASED [None]
  - PALLOR [None]
  - CONTUSION [None]
  - FATIGUE [None]
  - DEPRESSED MOOD [None]
  - DIZZINESS [None]
  - HEADACHE [None]
  - GOUT [None]
